FAERS Safety Report 4906481-9 (Version None)
Quarter: 2006Q1

REPORT INFORMATION
  Report Type: 
  Country: None (occurrence: None)
  Receive Date: 20060207
  Receipt Date: 20060204
  Transmission Date: 20060701
  Serious: Yes (Hospitalization)
  Sender: FDA-Public Use
  Company Number: 220403

PATIENT
  Age: 46 Year
  Sex: Male
  Weight: 78.5 kg

DRUGS (9)
  1. RITUXIMAB (RITUXIMAB) CONC FOR SOLUTION FOR INFUSION [Suspect]
     Indication: CHRONIC LYMPHOCYTIC LEUKAEMIA
     Dosage: 375 MG/M2
     Dates: start: 20050113, end: 20050622
  2. FLUDARABINE PHOSPHATE [Suspect]
     Indication: CHRONIC LYMPHOCYTIC LEUKAEMIA
     Dosage: 25 MG, INTRAVENOUS
     Route: 042
     Dates: start: 20050120, end: 20050622
  3. CYCLOPHOSPHAMIDE (CYHCLOPHOSPHAMIDE) [Concomitant]
     Indication: CHRONIC LYMPHOCYTIC LEUKAEMIA
     Dosage: 250
     Dates: start: 20050120, end: 20050622
  4. FLUCONAZOLE [Concomitant]
  5. TEGRETOL [Concomitant]
  6. ACETAMINOPHEN [Concomitant]
  7. AZITHROMYCIN [Concomitant]
  8. ASCORBIC ACID [Concomitant]
  9. FAMOTIDINE [Concomitant]

REACTIONS (11)
  - ALPHA HAEMOLYTIC STREPTOCOCCAL INFECTION [None]
  - BRONCHITIS [None]
  - FEBRILE NEUTROPENIA [None]
  - FUNGAL INFECTION [None]
  - LYMPHOCYTE COUNT DECREASED [None]
  - MONOCYTE COUNT DECREASED [None]
  - OESOPHAGITIS [None]
  - PHARYNGITIS [None]
  - SPUTUM CULTURE POSITIVE [None]
  - STOMATITIS [None]
  - THROMBOCYTOPENIA [None]
